FAERS Safety Report 4544925-5 (Version None)
Quarter: 2005Q1

REPORT INFORMATION
  Report Type: 
  Country: None (occurrence: None)
  Receive Date: 20050105
  Receipt Date: 20040924
  Transmission Date: 20050727
  Serious: Yes (Hospitalization)
  Sender: FDA-Public Use
  Company Number: US-GLAXOSMITHKLINE-A0527305A

PATIENT
  Sex: Female

DRUGS (1)
  1. ARIXTRA [Suspect]
     Route: 058
     Dates: end: 20040924

REACTIONS (1)
  - MOUTH HAEMORRHAGE [None]
